FAERS Safety Report 24917879 (Version 2)
Quarter: 2025Q1

REPORT INFORMATION
  Report Type: Report from Study
  Country: CO (occurrence: CO)
  Receive Date: 20250203
  Receipt Date: 20250204
  Transmission Date: 20250409
  Serious: Yes (Hospitalization, Other)
  Sender: MERCK
  Company Number: CO-009507513-2407COL002943

PATIENT
  Age: 54 Year
  Sex: Male

DRUGS (6)
  1. PEMBROLIZUMAB [Suspect]
     Active Substance: PEMBROLIZUMAB
     Indication: Lung neoplasm malignant
     Dosage: 200 MILLIGRAM, Q3W
     Route: 042
     Dates: start: 20240410, end: 20240410
  2. PEMBROLIZUMAB [Suspect]
     Active Substance: PEMBROLIZUMAB
     Dosage: 200 MILLIGRAM, Q3W
     Route: 042
     Dates: start: 20240624, end: 20240624
  3. PEMBROLIZUMAB [Suspect]
     Active Substance: PEMBROLIZUMAB
     Dosage: 200 MILLIGRAM, Q3W CYCLE 5TH
     Route: 042
     Dates: start: 20240830, end: 20240830
  4. PEMBROLIZUMAB [Suspect]
     Active Substance: PEMBROLIZUMAB
     Dosage: 200 MILLIGRAM, Q3W
     Route: 042
     Dates: start: 20241030, end: 20241030
  5. PEMBROLIZUMAB [Suspect]
     Active Substance: PEMBROLIZUMAB
     Dosage: 200 MILLIGRAM, Q3W
     Route: 042
     Dates: start: 20241217
  6. PEMETREXED [Concomitant]
     Active Substance: PEMETREXED
     Indication: Lung neoplasm malignant
     Dosage: UNK, Q3W
     Route: 042
     Dates: start: 20240410

REACTIONS (16)
  - Pulmonary embolism [Unknown]
  - Bone pain [Recovering/Resolving]
  - Arthralgia [Recovering/Resolving]
  - Intracranial mass [Unknown]
  - Spinal pain [Unknown]
  - Mass [Unknown]
  - Discouragement [Recovered/Resolved]
  - Feeling of body temperature change [Recovered/Resolved]
  - Influenza [Recovered/Resolved]
  - Pain [Recovered/Resolved]
  - Nausea [Recovered/Resolved]
  - Nausea [Recovered/Resolved]
  - Vomiting [Recovered/Resolved]
  - Diarrhoea [Recovered/Resolved]
  - Product availability issue [Unknown]
  - Inappropriate schedule of product administration [Unknown]

NARRATIVE: CASE EVENT DATE: 20240101
